FAERS Safety Report 7753464-X (Version None)
Quarter: 2011Q3

REPORT INFORMATION
  Report Type: 
  Country: None (occurrence: None)
  Receive Date: 20110915
  Receipt Date: 20110902
  Transmission Date: 20111222
  Serious: Yes (Hospitalization, Other)
  Sender: FDA-Public Use
  Company Number: US-ELI_LILLY_AND_COMPANY-US201008007138

PATIENT
  Sex: Female

DRUGS (17)
  1. FORTEO [Suspect]
     Dosage: 20 UG, QD
  2. TRIAMTERENE [Concomitant]
  3. FORTEO [Suspect]
     Dosage: 20 UG, QD
  4. VITAMIN D [Concomitant]
     Dosage: 50000 IU, MONTHLY (1/M)
  5. PREVACID [Concomitant]
  6. FISH OIL [Concomitant]
  7. CALCIUM CARBONATE [Concomitant]
  8. MULTI-VITAMIN [Concomitant]
  9. BIOTIN [Concomitant]
     Indication: ALOPECIA
  10. FORTEO [Suspect]
     Indication: OSTEOPOROSIS
     Dosage: 20 UG, QD
     Dates: start: 20100601
  11. FORTEO [Suspect]
     Dosage: 20 UG, QD
  12. PLAVIX [Concomitant]
  13. CELEBREX [Concomitant]
  14. ANTIHYPERTENSIVES [Concomitant]
  15. FORTEO [Suspect]
     Dosage: 20 UG, QD
  16. ATACAND [Concomitant]
  17. SANCTURA [Concomitant]

REACTIONS (12)
  - RIB FRACTURE [None]
  - NECK PAIN [None]
  - OSTEOARTHRITIS [None]
  - BILIARY DILATATION [None]
  - PANCREATITIS [None]
  - BONE PAIN [None]
  - PAIN IN EXTREMITY [None]
  - FEELING ABNORMAL [None]
  - MUSCULOSKELETAL PAIN [None]
  - INJECTION SITE HAEMATOMA [None]
  - BLOOD CALCIUM INCREASED [None]
  - ARTHRALGIA [None]
